FAERS Safety Report 8210437-0 (Version None)
Quarter: 2012Q1

REPORT INFORMATION
  Report Type: 
  Country: None (occurrence: None)
  Receive Date: 20120314
  Receipt Date: 20120131
  Transmission Date: 20120608
  Serious: No
  Sender: FDA-Public Use
  Company Number: US-ASTRAZENECA-2011SE71107

PATIENT
  Age: 61 Year
  Sex: Female

DRUGS (3)
  1. METOPROLOL TARTRATE [Suspect]
     Route: 048
  2. METOPROLOL SUCCINATE [Suspect]
     Route: 048
  3. METOPROLOL TARTRATE [Suspect]
     Route: 048

REACTIONS (7)
  - FATIGUE [None]
  - ADVERSE EVENT [None]
  - IMPAIRED WORK ABILITY [None]
  - MALAISE [None]
  - FEELING ABNORMAL [None]
  - DRUG EFFECT INCREASED [None]
  - ASTHENIA [None]
